FAERS Safety Report 17960421 (Version 6)
Quarter: 2021Q2

REPORT INFORMATION
  Report Type: Spontaneous
  Country: GB (occurrence: GB)
  Receive Date: 20200629
  Receipt Date: 20210626
  Transmission Date: 20210717
  Serious: Yes (Hospitalization, Other)
  Sender: FDA-Public Use
  Company Number: NVSC2020GB180301

PATIENT
  Age: 16 Year
  Sex: Female
  Weight: 57.2 kg

DRUGS (35)
  1. METHOTREXATE. [Suspect]
     Active Substance: METHOTREXATE
     Dosage: 22.5 MG, QW
     Route: 048
     Dates: start: 20181018
  2. HUMIRA [Suspect]
     Active Substance: ADALIMUMAB
     Indication: CROHN^S DISEASE
     Dosage: 40 MG, Q2W
     Route: 058
     Dates: start: 20131209, end: 20180430
  3. ADALIMUMAB [Concomitant]
     Active Substance: ADALIMUMAB
     Dosage: 40 MG, Q2W
     Route: 058
     Dates: start: 20190918
  4. MOVICOL [Concomitant]
     Active Substance: POLYETHYLENE GLYCOL 3350\POTASSIUM CHLORIDE\SODIUM BICARBONATE\SODIUM CHLORIDE
     Indication: CONSTIPATION
     Dosage: 8 DF, QD
     Route: 048
     Dates: start: 20191220, end: 20200207
  5. AZATHIOPRINE. [Suspect]
     Active Substance: AZATHIOPRINE
     Indication: CROHN^S DISEASE
     Dosage: 100 MG, QD
     Route: 048
     Dates: start: 20121011, end: 20181011
  6. HUMIRA [Suspect]
     Active Substance: ADALIMUMAB
     Dosage: 40 MG, QW
     Route: 058
     Dates: start: 20180507, end: 20190325
  7. FOLIC ACID. [Concomitant]
     Active Substance: FOLIC ACID
     Indication: VITAMIN SUPPLEMENTATION
     Dosage: 5 MG, QW
     Route: 048
     Dates: start: 20190629
  8. CHLORPHENAMINE MALEATE [Concomitant]
     Active Substance: CHLORPHENIRAMINE MALEATE
     Indication: PRURITUS
     Dosage: 4 MG, PRN
     Route: 048
     Dates: start: 20190704
  9. DICYCLOVERINE [Concomitant]
     Active Substance: DICYCLOMINE HYDROCHLORIDE
     Indication: CROHN^S DISEASE
     Dosage: 30 MG
     Route: 048
     Dates: start: 20141201
  10. ADALIMUMAB [Concomitant]
     Active Substance: ADALIMUMAB
     Indication: VITAMIN SUPPLEMENTATION
     Dosage: 80 MG, ONCE/SINGLE
     Route: 058
     Dates: start: 20190904, end: 20190904
  11. HYOSCINE BUTYLBROMIDE [Concomitant]
     Active Substance: BUTYLSCOPOLAMINE BROMIDE
     Indication: PROPHYLAXIS
     Dosage: 20 MG, PRN
     Route: 042
     Dates: start: 20200619
  12. METHOTREXATE. [Suspect]
     Active Substance: METHOTREXATE
     Indication: CROHN^S DISEASE
     Dosage: 22.5 MG, QW
     Route: 048
     Dates: start: 20121011, end: 20190614
  13. PARACETAMOL [Concomitant]
     Active Substance: ACETAMINOPHEN
     Indication: ANALGESIC THERAPY
     Dosage: 1 MG, PRN
     Route: 048
     Dates: start: 20190626
  14. HYOSCINE BUTYLBROMIDE [Concomitant]
     Active Substance: BUTYLSCOPOLAMINE BROMIDE
     Indication: ABDOMINAL PAIN
     Dosage: UNK
     Route: 065
  15. SODIUM PICOSULPHATE [Concomitant]
     Active Substance: SODIUM PICOSULFATE
     Dosage: 20 MG, QD
     Route: 048
     Dates: start: 20190709
  16. LACTULOSE. [Concomitant]
     Active Substance: LACTULOSE
     Indication: CONSTIPATION
     Dosage: 40 MG, QD
     Route: 048
     Dates: start: 20200207, end: 20200211
  17. METHOTREXATE. [Suspect]
     Active Substance: METHOTREXATE
     Dosage: 22.5 MG, QW
     Route: 048
     Dates: start: 20190628, end: 20200328
  18. METHOTREXATE. [Suspect]
     Active Substance: METHOTREXATE
     Dosage: 22.5 MG, QW
     Route: 048
     Dates: start: 20200418
  19. SODIUM PICOSULPHATE [Concomitant]
     Active Substance: SODIUM PICOSULFATE
     Indication: LAXATIVE SUPPORTIVE CARE
     Dosage: 10 MG, QD
     Route: 048
     Dates: start: 20190308, end: 20190314
  20. SODIUM PICOSULPHATE [Concomitant]
     Active Substance: SODIUM PICOSULFATE
     Dosage: 20 MG, QD
     Route: 048
     Dates: start: 20200304, end: 20200308
  21. NUTRISON MULTIFIBRE [Concomitant]
     Indication: NUTRITIONAL SUPPLEMENTATION
     Dosage: 1800?2400 MLOVER 24 YEARS
     Route: 050
     Dates: start: 20190701
  22. DOMPERIDONE MALEATE [Concomitant]
     Active Substance: DOMPERIDONE MALEATE
     Indication: CROHN^S DISEASE
     Dosage: 30 MG, QD
     Route: 048
     Dates: start: 20200601, end: 20200608
  23. HYOSCINE BUTYLBROMIDE [Concomitant]
     Active Substance: BUTYLSCOPOLAMINE BROMIDE
     Indication: CROHN^S DISEASE
     Dosage: 10 MG, PRN
     Route: 048
     Dates: start: 20190407, end: 20200127
  24. SODIUM PICOSULPHATE [Concomitant]
     Active Substance: SODIUM PICOSULFATE
     Indication: CROHN^S DISEASE
     Dosage: 30 MG, QD
     Route: 048
     Dates: start: 20190320, end: 20190617
  25. SODIUM PHOSPHATE [Concomitant]
     Active Substance: SODIUM PHOSPHATE
     Indication: CONSTIPATION
     Dosage: 100 MG, ONCE/SINGLE
     Route: 054
     Dates: start: 20200211, end: 20200211
  26. FUSIDIC ACID [Concomitant]
     Active Substance: FUSIDIC ACID
     Indication: SKIN INFECTION
     Dosage: 6 %, QD
     Route: 061
     Dates: start: 20190716
  27. GAVISCON ADVANCE [Concomitant]
     Active Substance: POTASSIUM BICARBONATE\SODIUM ALGINATE
     Indication: GASTROOESOPHAGEAL REFLUX DISEASE
     Dosage: 30 MG, QD
     Route: 048
     Dates: start: 20190802
  28. RELAXIT [Concomitant]
     Indication: SKIN INFECTION
     Dosage: 5 MG, QD
     Route: 054
     Dates: start: 20200421
  29. ONDANSETRON [Concomitant]
     Active Substance: ONDANSETRON
     Indication: VOMITING
  30. DANDRAZOL [Concomitant]
     Active Substance: KETOCONAZOLE
     Indication: SEBORRHOEIC DERMATITIS
     Dosage: 2 UNK, QW (AS DIRECTED)
     Route: 061
     Dates: start: 20191128
  31. ONDANSETRON [Concomitant]
     Active Substance: ONDANSETRON
     Indication: NAUSEA
     Dosage: 16 MG, QD
     Route: 048
     Dates: start: 20190701
  32. ADALIMUMAB [Concomitant]
     Active Substance: ADALIMUMAB
     Indication: CROHN^S DISEASE
     Dosage: 80 MG, QD
     Route: 058
     Dates: start: 20190820, end: 20190821
  33. BETNOVATE [Concomitant]
     Active Substance: BETAMETHASONE
     Indication: SEBORRHOEIC DERMATITIS
     Dosage: ALTERNATE DAYS FOR TWO WEEKS, THEN ONCE WEEKLY (AS DIRECTED)
     Route: 061
     Dates: start: 20191128
  34. GAVISCON ADVANCE [Concomitant]
     Active Substance: POTASSIUM BICARBONATE\SODIUM ALGINATE
     Indication: DYSPEPSIA
     Dosage: UNK
     Route: 065
  35. SODIUM PICOSULPHATE [Concomitant]
     Active Substance: SODIUM PICOSULFATE
     Indication: CONSTIPATION
     Dosage: 20 MG, QD
     Route: 048
     Dates: start: 20190315, end: 20190320

REACTIONS (4)
  - Impetigo [Recovered/Resolved]
  - Crohn^s disease [Recovered/Resolved]
  - Product use in unapproved indication [Unknown]
  - Constipation [Not Recovered/Not Resolved]

NARRATIVE: CASE EVENT DATE: 20200402
